FAERS Safety Report 5706295-6 (Version None)
Quarter: 2008Q2

REPORT INFORMATION
  Report Type: 
  Country: None (occurrence: None)
  Receive Date: 20080328
  Receipt Date: 20071128
  Transmission Date: 20081010
  Serious: Yes (Other)
  Sender: FDA-Public Use
  Company Number: US-WYE-H01491707

PATIENT
  Age: 69 Year
  Sex: Female
  Weight: 59.02 kg

DRUGS (1)
  1. ALAVERT [Suspect]
     Dosage: 1 TABLET X 1, ORAL
     Route: 048
     Dates: start: 20071111, end: 20071111

REACTIONS (2)
  - ABDOMINAL PAIN UPPER [None]
  - NAUSEA [None]
